FAERS Safety Report 7919674-3 (Version None)
Quarter: 2011Q4

REPORT INFORMATION
  Report Type: 
  Country: None (occurrence: None)
  Receive Date: 20111115
  Receipt Date: 20111107
  Transmission Date: 20120403
  Serious: Yes (Hospitalization)
  Sender: FDA-Public Use
  Company Number: DSU-2011-08308

PATIENT
  Age: 47 Year
  Sex: Female
  Weight: 77.1115 kg

DRUGS (12)
  1. VICTOZA (LIRAGLUTIDE) (INJECTION) (LIRAGLUTIDE) [Concomitant]
  2. METOPROLOL SUCCINATE [Concomitant]
  3. AMITRIPTYLINE (AMITRIPTPYLINE) (AMITRIPTYLINE) [Concomitant]
  4. MIRAPEX (PRAMIPEXOLE DIHYDROCHLORIDE) (PRAMIPEXOLE DIHYDROCHLORIDE) [Concomitant]
  5. DIOVAN (VALSARTAN) (160 MILLIGRAM) (VALSARTAN) [Concomitant]
  6. VIIBRYD [VILAZADONE HCL] (SSRI) [Concomitant]
  7. WELCHOL [Suspect]
     Indication: HYPERLIPIDAEMIA
     Dosage: 3750 MG (1250 MG, TID), PER ORAL
     Route: 048
     Dates: start: 20110101, end: 20110101
  8. JANUVIA (SITAGLIPTIN PHOSPHATE) (SITAGLIPTIN PHOSPHATE) [Concomitant]
  9. TRICOR [Concomitant]
  10. METFORMIN (METFORMIN) (500 MILLIGRAM) (METFORMIN) [Concomitant]
  11. LASIX [Concomitant]
  12. HUMALOG (INSULIN) (INSULIN) [Concomitant]

REACTIONS (4)
  - VOMITING PROJECTILE [None]
  - DIARRHOEA [None]
  - FLATULENCE [None]
  - NAUSEA [None]
